FAERS Safety Report 5675316-1 (Version None)
Quarter: 2008Q2

REPORT INFORMATION
  Report Type: 
  Country: None (occurrence: None)
  Receive Date: 20080307
  Receipt Date: 20070806
  Transmission Date: 20081010
  Serious: Yes (Other)
  Sender: FDA-Public Use
  Company Number: US200708001570

PATIENT
  Sex: Male

DRUGS (2)
  1. ALIMTA [Suspect]
     Indication: MESOTHELIOMA
     Dosage: 500 MG/M2,OTHER
  2. GEMZAR [Suspect]
     Indication: MESOTHELIOMA
     Dosage: 1000 MG/M2, OTHER

REACTIONS (1)
  - BONE MARROW FAILURE [None]
